FAERS Safety Report 5171631-9 (Version None)
Quarter: 2006Q4

REPORT INFORMATION
  Report Type: 
  Country: None (occurrence: None)
  Receive Date: 20061205
  Receipt Date: 20061116
  Transmission Date: 20070319
  Serious: Yes (Hospitalization)
  Sender: FDA-Public Use
  Company Number: US-2006-035817

PATIENT
  Sex: 0

DRUGS (1)
  1. LEUKINE [Suspect]
     Indication: NEUTROPENIA
     Dosage: 500 UG, 1 DOSE, SUBCUTANEOUS
     Route: 058

REACTIONS (2)
  - CARDIAC FAILURE [None]
  - RESPIRATORY DISTRESS [None]
